FAERS Safety Report 12714050 (Version 1)
Quarter: 2016Q3

REPORT INFORMATION
  Report Type: Spontaneous
  Country: ES (occurrence: ES)
  Receive Date: 20160905
  Receipt Date: 20160905
  Transmission Date: 20161109
  Serious: Yes (Hospitalization)
  Sender: FDA-Public Use
  Company Number: ES-ASTRAZENECA-2016SE92149

PATIENT
  Age: 6 Year
  Sex: Male

DRUGS (2)
  1. HYDROCORTISONE. [Concomitant]
     Active Substance: HYDROCORTISONE
     Indication: ADRENOGENITAL SYNDROME
     Dosage: 20 MG/M2 BSA PER DAY
  2. ANASTROZOLE. [Suspect]
     Active Substance: ANASTROZOLE
     Indication: ADRENOGENITAL SYNDROME
     Route: 048

REACTIONS (4)
  - Spondylolisthesis [Unknown]
  - Drug administered to patient of inappropriate age [Unknown]
  - Off label use [Unknown]
  - Product use issue [Unknown]
